FAERS Safety Report 11841803 (Version 1)
Quarter: 2015Q4

REPORT INFORMATION
  Report Type: Report from Study
  Country: BR (occurrence: BR)
  Receive Date: 20151216
  Receipt Date: 20151216
  Transmission Date: 20160305
  Serious: Yes (Hospitalization)
  Sender: FDA-Public Use
  Company Number: BR-ABBVIE-15K-020-1513074-00

PATIENT
  Age: 24 Year
  Sex: Female

DRUGS (1)
  1. HUMIRA [Suspect]
     Active Substance: ADALIMUMAB
     Indication: CROHN^S DISEASE
     Route: 058
     Dates: start: 20130601

REACTIONS (13)
  - Diarrhoea [Unknown]
  - Pus in stool [Unknown]
  - Haematochezia [Unknown]
  - Vomiting [Unknown]
  - Oesophagitis [Unknown]
  - Gastritis [Unknown]
  - Constipation [Unknown]
  - Faeces hard [Unknown]
  - Inflammation [Unknown]
  - Malnutrition [Unknown]
  - Dehydration [Unknown]
  - Nausea [Unknown]
  - Abdominal pain [Unknown]

NARRATIVE: CASE EVENT DATE: 20151205
